FAERS Safety Report 21702349 (Version 1)
Quarter: 2022Q4

REPORT INFORMATION
  Report Type: Spontaneous
  Country: US (occurrence: US)
  Receive Date: 20221208
  Receipt Date: 20221208
  Transmission Date: 20230113
  Serious: Yes (Other)
  Sender: FDA-Public Use
  Company Number: US-BRISTOL-MYERS SQUIBB COMPANY-2022-148715

PATIENT
  Age: 66 Year
  Sex: Female

DRUGS (2)
  1. NIVOLUMAB [Suspect]
     Active Substance: NIVOLUMAB
     Indication: Melanoma recurrent
     Dosage: 2 CYCLES
     Route: 065
  2. IPILIMUMAB [Suspect]
     Active Substance: IPILIMUMAB
     Indication: Melanoma recurrent
     Dosage: 2 CYCLES
     Route: 065

REACTIONS (2)
  - Immune-mediated enterocolitis [Recovering/Resolving]
  - Immune-mediated pericarditis [Recovering/Resolving]
